FAERS Safety Report 8433039-X (Version None)
Quarter: 2012Q2

REPORT INFORMATION
  Report Type: 
  Country: None (occurrence: None)
  Receive Date: 20120613
  Receipt Date: 20120605
  Transmission Date: 20120825
  Serious: Yes (Life-Threatening)
  Sender: FDA-Public Use
  Company Number: NL-ROCHE-1075971

PATIENT
  Sex: Male
  Weight: 52 kg

DRUGS (10)
  1. CALCIUM GLUCONATE [Concomitant]
     Dates: start: 20120520
  2. CEFTRIAXONE [Suspect]
     Indication: EAR INFECTION
     Route: 042
     Dates: start: 20120520, end: 20120523
  3. POTASSIUM CHLORIDE [Concomitant]
     Dates: start: 20120521
  4. CEFTRIAXONE [Suspect]
     Indication: RHINITIS
  5. GANCICLOVIR SODIUM [Suspect]
     Indication: OPPORTUNISTIC INFECTION
     Route: 042
     Dates: start: 20120522, end: 20120523
  6. AMFOTERICINE B [Concomitant]
     Route: 042
     Dates: start: 20120521
  7. ESOMEPRAZOLE [Concomitant]
     Dates: start: 20120522
  8. CEFTRIAXONE [Suspect]
     Indication: PHARYNGITIS
  9. LACTULOSE [Concomitant]
     Dates: start: 20120523
  10. LIQUID DIET [Concomitant]
     Dates: start: 20120522

REACTIONS (1)
  - HYPOGLYCAEMIA [None]
